FAERS Safety Report 9055916 (Version 1)
Quarter: 2013Q1

REPORT INFORMATION
  Report Type: Spontaneous
  Country: US (occurrence: US)
  Receive Date: 20130206
  Receipt Date: 20130206
  Transmission Date: 20140127
  Serious: No
  Sender: FDA-Public Use
  Company Number: US-ALLERGAN-1200465US

PATIENT
  Age: 60 Year
  Sex: Female

DRUGS (2)
  1. RESTASIS [Suspect]
     Indication: DRY EYE
     Dosage: 2 GTT, BID
     Route: 047
     Dates: start: 201101
  2. REFRESH OPTIVE [Suspect]
     Indication: DRY EYE
     Dosage: UNK
     Route: 047
     Dates: start: 201101

REACTIONS (2)
  - Instillation site pain [Not Recovered/Not Resolved]
  - Foreign body sensation in eyes [Recovered/Resolved]
